FAERS Safety Report 5146992-7 (Version None)
Quarter: 2006Q4

REPORT INFORMATION
  Report Type: 
  Country: None (occurrence: None)
  Receive Date: 20061103
  Receipt Date: 20061025
  Transmission Date: 20070319
  Serious: Yes (Death, Other)
  Sender: FDA-Public Use
  Company Number: 2004090802

PATIENT
  Age: 45 Year
  Sex: Male

DRUGS (6)
  1. ZIPRASIDONE HCL [Suspect]
     Indication: SCHIZOPHRENIA
     Dosage: 160 MG (80 MG, 2 IN 1 D), ORAL
     Route: 048
     Dates: start: 20040830
  2. ALCOHOL (ETHANOL) [Suspect]
     Dosage: ORAL
     Route: 048
  3. OXAZEPAM [Suspect]
     Indication: ANXIETY
     Dosage: 15 MG (15 MG, 1 IN 1 D), ORAL
     Route: 048
  4. ZOPICLONE (ZOPICLONE) [Concomitant]
  5. ZYPREXA [Concomitant]
  6. MAREVAN FORTE (WARFARIN SODIUM) [Concomitant]

REACTIONS (4)
  - ELECTROCARDIOGRAM QT PROLONGED [None]
  - FALL [None]
  - HEAD INJURY [None]
  - SUDDEN DEATH [None]
